FAERS Safety Report 25040260 (Version 1)
Quarter: 2025Q1

REPORT INFORMATION
  Report Type: Report from Study
  Country: US (occurrence: US)
  Receive Date: 20250305
  Receipt Date: 20250305
  Transmission Date: 20250409
  Serious: Yes (Other)
  Sender: GILEAD
  Company Number: US-GILEAD-2025-0705600

PATIENT
  Age: 72 Year
  Sex: Female

DRUGS (2)
  1. AMBRISENTAN [Suspect]
     Active Substance: AMBRISENTAN
     Indication: Pulmonary arterial hypertension
     Dosage: 5 MG, QD
     Route: 065
     Dates: start: 201906
  2. UPTRAVI [Concomitant]
     Active Substance: SELEXIPAG
     Indication: Pulmonary arterial hypertension

REACTIONS (3)
  - Pulmonary embolism [Not Recovered/Not Resolved]
  - Heart valve replacement [Unknown]
  - Decreased appetite [Not Recovered/Not Resolved]
